FAERS Safety Report 9701558 (Version 2)
Quarter: 2013Q4

REPORT INFORMATION
  Report Type: Spontaneous
  Country: US (occurrence: None)
  Receive Date: 20131119
  Receipt Date: 20131127
  Transmission Date: 20140711
  Serious: Yes (Hospitalization)
  Sender: FDA-Public Use
  Company Number: US-20130009

PATIENT
  Age: 51 Year
  Sex: Female

DRUGS (22)
  1. OXILAN [Suspect]
     Indication: THERAPEUTIC EMBOLISATION
     Route: 013
     Dates: start: 20131025, end: 20131025
  2. LIPIODOL (ETHIODIZED OIL) (ETHIODIZED OIL) [Concomitant]
  3. DOXORUBICIN [Concomitant]
  4. MITOMYCIN-C (MITOMYCIN) (MITOMYCIN) [Concomitant]
  5. LASIX(FUROSEMIDE)(FUROSEMIDE) [Concomitant]
  6. ALDACTONE(SPIRINOLACTONE)(SPIRINOLACTONE) [Concomitant]
  7. DILAUDID(HYDROMORPHONE)(HYDROMORPHONE) [Concomitant]
  8. LACTULOSE(LACTULOSE)(LACTULOSE) [Concomitant]
  9. DIPHENHYDRAMINE(DIPHENHYDRAMINE)(DIPHENHYDRAMINE) [Concomitant]
  10. DEXAMETHASONE(DEXAMETHASONE)(DEXAMETHASONE) [Concomitant]
  11. ONDANSETRON(ONDANSETRON)(ONDANSETRON) [Concomitant]
  12. VERSED(MIDAZOLAM)(MIDAZOLAM) [Concomitant]
  13. FENTANYL(FENTANYL)(FENTANYL) [Concomitant]
  14. LIDOCAINE 1%(LIDOCAINE)(1 PERCENT)(LIDOCAINE) [Concomitant]
  15. POTASSIUM [Concomitant]
  16. ALPRAZOLAM [Concomitant]
  17. ATENOLOL [Concomitant]
  18. LEVEMIR(INSULIN DETEMIR)(INSULIN DETEMIR) [Concomitant]
  19. VICTOZA [Concomitant]
  20. LEVOTHYROXINE(LEVOTHYROXINE)(LEVOTHYROXINE) [Concomitant]
  21. NYSTATIN(NYSTATIN)(NYSTATIN) [Concomitant]
  22. ZINC(ZINC)(ZINC) [Concomitant]

REACTIONS (5)
  - Renal failure acute [None]
  - Hepatic encephalopathy [None]
  - Hyponatraemia [None]
  - Blood pressure decreased [None]
  - Dizziness [None]
